FAERS Safety Report 5304416-0 (Version None)
Quarter: 2007Q2

REPORT INFORMATION
  Report Type: 
  Country: None (occurrence: None)
  Receive Date: 20070423
  Receipt Date: 20070411
  Transmission Date: 20071010
  Serious: Yes (Other)
  Sender: FDA-Public Use
  Company Number: US-ROCHE-492329

PATIENT
  Age: 53 Year
  Sex: Male

DRUGS (1)
  1. PEGASYS [Suspect]
     Route: 065

REACTIONS (4)
  - BLOOD GASES ABNORMAL [None]
  - COUGH [None]
  - DYSPNOEA [None]
  - WHEEZING [None]
